FAERS Safety Report 8377316-X (Version None)
Quarter: 2012Q2

REPORT INFORMATION
  Report Type: 
  Country: None (occurrence: None)
  Receive Date: 20120522
  Receipt Date: 20120507
  Transmission Date: 20120825
  Serious: Yes (Hospitalization)
  Sender: FDA-Public Use
  Company Number: CA-WATSON-2012-08160

PATIENT
  Age: 15 Month
  Sex: Female
  Weight: 10 kg

DRUGS (1)
  1. BACLOFEN [Suspect]
     Indication: ACCIDENTAL EXPOSURE
     Dosage: UNK
     Route: 065

REACTIONS (4)
  - ATAXIA [None]
  - ACCIDENTAL OVERDOSE [None]
  - UNRESPONSIVE TO STIMULI [None]
  - RESPIRATORY DEPRESSION [None]
